FAERS Safety Report 24539181 (Version 1)
Quarter: 2024Q4

REPORT INFORMATION
  Report Type: Spontaneous
  Country: IL (occurrence: IL)
  Receive Date: 20241023
  Receipt Date: 20241023
  Transmission Date: 20250115
  Serious: Yes (Hospitalization, Other)
  Sender: SANDOZ
  Company Number: IL-002147023-PHHY2019IL154640

PATIENT
  Age: 22 Year
  Sex: Female

DRUGS (1)
  1. CLONAZEPAM [Suspect]
     Active Substance: CLONAZEPAM
     Indication: Product used for unknown indication
     Dosage: 2 DF, UNK
     Route: 048

REACTIONS (9)
  - Compartment syndrome [Unknown]
  - Paraparesis [Unknown]
  - Hyporeflexia [Unknown]
  - Depressed level of consciousness [Unknown]
  - Demyelinating polyneuropathy [Unknown]
  - Confusional state [Unknown]
  - Anuria [Unknown]
  - Anaemia macrocytic [Unknown]
  - Hypothyroidism [Unknown]
